FAERS Safety Report 20141627 (Version 2)
Quarter: 2022Q1

REPORT INFORMATION
  Report Type: Spontaneous
  Country: NL (occurrence: NL)
  Receive Date: 20211202
  Receipt Date: 20220331
  Transmission Date: 20220424
  Serious: Yes (Hospitalization, Other)
  Sender: FDA-Public Use
  Company Number: NL-PFIZER INC-202101352797

PATIENT
  Age: 28 Year
  Sex: Female

DRUGS (1)
  1. PREGABALIN [Suspect]
     Active Substance: PREGABALIN
     Indication: Product used for unknown indication
     Dosage: 4200 MG (DOSE (MGKG-1)/46.7)
     Route: 065

REACTIONS (7)
  - Hypothermia [Unknown]
  - Electrocardiogram T wave inversion [Unknown]
  - Bradypnoea [Unknown]
  - Toxicity to various agents [Unknown]
  - Somnolence [Unknown]
  - Hypokalaemia [Unknown]
  - Intentional overdose [Unknown]
